FAERS Safety Report 10847956 (Version 1)
Quarter: 2015Q1

REPORT INFORMATION
  Report Type: Spontaneous
  Country: US (occurrence: US)
  Receive Date: 20150220
  Receipt Date: 20150220
  Transmission Date: 20150721
  Serious: Yes (Other)
  Sender: FDA-Public Use
  Company Number: US-CELGENEUS-163-21880-13115076

PATIENT
  Sex: Male
  Weight: 73.09 kg

DRUGS (1)
  1. REVLIMID [Suspect]
     Active Substance: LENALIDOMIDE
     Indication: PLASMA CELL MYELOMA
     Dosage: 5 MILLIGRAM
     Route: 048
     Dates: start: 20131030

REACTIONS (7)
  - Mobility decreased [Unknown]
  - Pruritus generalised [Unknown]
  - Weight decreased [Unknown]
  - Pain in extremity [Unknown]
  - Drug ineffective [Unknown]
  - Somnolence [Unknown]
  - Limb discomfort [Unknown]

NARRATIVE: CASE EVENT DATE: 2013
